FAERS Safety Report 19668931 (Version 2)
Quarter: 2021Q4

REPORT INFORMATION
  Report Type: Spontaneous
  Country: US (occurrence: US)
  Receive Date: 20210806
  Receipt Date: 20211225
  Transmission Date: 20220303
  Serious: No
  Sender: FDA-Public Use
  Company Number: US-SA-SAC20210805000104

PATIENT
  Age: 55 Year
  Sex: Female

DRUGS (1)
  1. DUPIXENT [Suspect]
     Active Substance: DUPILUMAB
     Dosage: 300 MG, QOW
     Route: 058
     Dates: start: 20210712, end: 202107

REACTIONS (3)
  - Drug hypersensitivity [Unknown]
  - Swelling face [Unknown]
  - Rash [Unknown]

NARRATIVE: CASE EVENT DATE: 20210727
